FAERS Safety Report 20308485 (Version 2)
Quarter: 2022Q1

REPORT INFORMATION
  Report Type: Spontaneous
  Country: BY (occurrence: None)
  Receive Date: 20220107
  Receipt Date: 20220212
  Transmission Date: 20220423
  Serious: Yes (Death)
  Sender: FDA-Public Use
  Company Number: BY-ROCHE-2997364

PATIENT
  Sex: Male

DRUGS (3)
  1. TECENTRIQ [Suspect]
     Active Substance: ATEZOLIZUMAB
     Indication: Transitional cell carcinoma
     Dosage: ECOG 0-1, HGB-111 G/L
     Route: 042
     Dates: start: 20211103
  2. TECENTRIQ [Suspect]
     Active Substance: ATEZOLIZUMAB
     Dosage: ECOG 0-1
     Route: 042
     Dates: start: 20211124
  3. TECENTRIQ [Suspect]
     Active Substance: ATEZOLIZUMAB
     Dosage: ECOG 2
     Route: 042
     Dates: start: 20211221

REACTIONS (1)
  - Transitional cell carcinoma [Fatal]
